FAERS Safety Report 9609006 (Version 1)
Quarter: 2013Q4

REPORT INFORMATION
  Report Type: Spontaneous
  Country: JP (occurrence: JP)
  Receive Date: 20131009
  Receipt Date: 20131009
  Transmission Date: 20140711
  Serious: Yes (Death)
  Sender: FDA-Public Use
  Company Number: JP-ELI_LILLY_AND_COMPANY-JP201310000646

PATIENT
  Age: 81 Year
  Sex: Female

DRUGS (3)
  1. EVISTA [Suspect]
     Indication: OSTEOPOROSIS POSTMENOPAUSAL
     Dosage: UNK
     Route: 048
     Dates: start: 201103
  2. MICARDIS [Concomitant]
     Indication: HYPERTENSION
     Route: 048
  3. MEVALOTIN [Concomitant]
     Route: 048

REACTIONS (1)
  - Death [Fatal]
